FAERS Safety Report 4733588-1 (Version None)
Quarter: 2005Q3

REPORT INFORMATION
  Report Type: 
  Country: None (occurrence: None)
  Receive Date: 20050729
  Receipt Date: 20050721
  Transmission Date: 20060218
  Serious: Yes (Hospitalization)
  Sender: FDA-Public Use
  Company Number: 2005105558

PATIENT
  Age: 73 Year
  Sex: Male

DRUGS (4)
  1. TORVAST (ATORVASTATIN) [Suspect]
     Indication: MYOCARDIAL ISCHAEMIA
     Dosage: }20 MG (20 MG, 1 IN 1 D), ORAL
     Route: 048
     Dates: start: 20030101, end: 20050618
  2. TICLOPIDINE HCL [Concomitant]
  3. ATENOLOL [Concomitant]
  4. ISOSORBIDE MONONITRATE [Concomitant]

REACTIONS (2)
  - PANCREATITIS HAEMORRHAGIC [None]
  - PANCREATITIS NECROTISING [None]
